FAERS Safety Report 5000225-0 (Version None)
Quarter: 2006Q2

REPORT INFORMATION
  Report Type: 
  Country: None (occurrence: None)
  Receive Date: 20060509
  Receipt Date: 20040421
  Transmission Date: 20061013
  Serious: Yes (Death, Life-Threatening, Hospitalization, Other)
  Sender: FDA-Public Use
  Company Number: 2004210329BE

PATIENT
  Age: 75 Year
  Sex: Female

DRUGS (6)
  1. BEXTRA [Suspect]
     Indication: METASTATIC PAIN
     Dosage: 40 MG (20 MG, 2 IN 1 D), ORAL
     Route: 048
     Dates: start: 20040204, end: 20040404
  2. AMLODIPINE [Concomitant]
  3. LASIX [Concomitant]
  4. GLICLAZIDE (GLICLAZIDE) [Concomitant]
  5. AROMASIN [Concomitant]
  6. ACETYLSALICYLIC ACID SRT [Concomitant]

REACTIONS (1)
  - SMALL INTESTINAL PERFORATION [None]
